FAERS Safety Report 12251955 (Version 2)
Quarter: 2016Q3

REPORT INFORMATION
  Report Type: Spontaneous
  Country: FR (occurrence: FR)
  Receive Date: 20160411
  Receipt Date: 20160701
  Transmission Date: 20161109
  Serious: Yes (Other)
  Sender: FDA-Public Use
  Company Number: FR-009507513-1604FRA006099

PATIENT
  Age: 64 Year
  Sex: Female

DRUGS (7)
  1. ZOPHREN (ONDANSETRON) [Suspect]
     Active Substance: ONDANSETRON
     Dosage: 8 MG, BID
     Route: 042
     Dates: start: 20160309, end: 20160313
  2. EMEND [Suspect]
     Active Substance: APREPITANT
     Dosage: 80 MG, QD
     Route: 048
     Dates: start: 20160309, end: 20160312
  3. ETOPOSIDE. [Suspect]
     Active Substance: ETOPOSIDE
     Indication: T-CELL LYMPHOMA
     Dosage: 310 MG, ONCE
     Route: 042
     Dates: start: 20160311, end: 20160311
  4. CYTARABINE. [Suspect]
     Active Substance: CYTARABINE
     Indication: T-CELL LYMPHOMA
     Dosage: 312 MG, QD
     Route: 042
     Dates: start: 20160311, end: 20160312
  5. INEXIUM (ESOMEPRAZOLE SODIUM) [Suspect]
     Active Substance: ESOMEPRAZOLE SODIUM
     Dosage: 40 MG, QD
     Route: 048
     Dates: start: 20160308, end: 20160311
  6. LEVACT [Suspect]
     Active Substance: BENDAMUSTINE HYDROCHLORIDE
     Indication: T-CELL LYMPHOMA
     Dosage: 187 MG, QD
     Route: 042
     Dates: start: 20160309, end: 20160310
  7. INEXIUM (ESOMEPRAZOLE SODIUM) [Suspect]
     Active Substance: ESOMEPRAZOLE SODIUM
     Dosage: UNK
     Route: 048
     Dates: start: 20160312

REACTIONS (1)
  - Acute kidney injury [Recovered/Resolved]

NARRATIVE: CASE EVENT DATE: 20160312
